FAERS Safety Report 5849312-5 (Version None)
Quarter: 2008Q3

REPORT INFORMATION
  Report Type: 
  Country: None (occurrence: None)
  Receive Date: 20080819
  Receipt Date: 20080808
  Transmission Date: 20090109
  Serious: Yes (Hospitalization, Other)
  Sender: FDA-Public Use
  Company Number: US-AMGEN-US300471

PATIENT
  Age: 61 Year
  Sex: Female

DRUGS (3)
  1. NEULASTA [Suspect]
     Indication: CHEMOTHERAPY
     Route: 065
     Dates: start: 20080101
  2. DOCETAXEL [Suspect]
     Route: 065
  3. CYCLOPHOSPHAMIDE [Suspect]
     Route: 065

REACTIONS (9)
  - AMNESIA [None]
  - CHEST DISCOMFORT [None]
  - DYSPNOEA [None]
  - FALL [None]
  - FLUSHING [None]
  - HAEMATOMA [None]
  - HEAD INJURY [None]
  - HYPERSENSITIVITY [None]
  - LOSS OF CONSCIOUSNESS [None]
